FAERS Safety Report 4677874-2 (Version None)
Quarter: 2005Q2

REPORT INFORMATION
  Report Type: 
  Country: None (occurrence: None)
  Receive Date: 20050531
  Receipt Date: 20041123
  Transmission Date: 20051028
  Serious: Yes (Hospitalization, Other)
  Sender: FDA-Public Use
  Company Number: FR-GLAXOSMITHKLINE-B0358394A

PATIENT
  Age: 46 Year
  Sex: Male
  Weight: 45 kg

DRUGS (7)
  1. ZIAGEN [Suspect]
     Indication: HIV INFECTION
     Dosage: 300MG TWICE PER DAY
     Route: 048
     Dates: start: 20041110, end: 20041122
  2. TELZIR [Suspect]
     Indication: HIV INFECTION
     Dosage: 700MG TWICE PER DAY
     Route: 048
     Dates: start: 20041118, end: 20041118
  3. BACTRIM [Suspect]
     Dosage: .5G PER DAY
     Route: 042
     Dates: start: 20040929, end: 20041128
  4. VIDEX [Concomitant]
     Indication: HIV INFECTION
     Route: 048
     Dates: start: 20041110, end: 20041122
  5. NORVIR [Concomitant]
     Indication: HIV INFECTION
     Dosage: 100MG TWICE PER DAY
     Route: 048
     Dates: start: 20041118, end: 20041118
  6. KALETRA [Concomitant]
     Indication: HIV INFECTION
     Route: 048
     Dates: start: 20041110, end: 20041118
  7. AMPHOTERICINE [Concomitant]
     Indication: CRYPTOCOCCOSIS
     Route: 048
     Dates: start: 20040101

REACTIONS (20)
  - ABDOMINAL PAIN [None]
  - BLOOD CREATINE PHOSPHOKINASE INCREASED [None]
  - BLOOD LACTATE DEHYDROGENASE INCREASED [None]
  - C-REACTIVE PROTEIN INCREASED [None]
  - DRUG HYPERSENSITIVITY [None]
  - HEPATITIS [None]
  - HYPOTENSION [None]
  - HYPOTHERMIA [None]
  - LEUKOCYTOSIS [None]
  - LIPASE INCREASED [None]
  - MYALGIA [None]
  - PANCREATITIS [None]
  - PROTHROMBIN TIME PROLONGED [None]
  - RENAL FAILURE [None]
  - RHABDOMYOLYSIS [None]
  - SERUM FERRITIN INCREASED [None]
  - SKIN EXFOLIATION [None]
  - THROMBOCYTOPENIA [None]
  - TRANSAMINASES INCREASED [None]
  - VOMITING [None]
